FAERS Safety Report 5815516-0 (Version None)
Quarter: 2008Q3

REPORT INFORMATION
  Report Type: 
  Country: None (occurrence: None)
  Receive Date: 20080718
  Receipt Date: 20080710
  Transmission Date: 20090109
  Serious: Yes (Hospitalization, Other)
  Sender: FDA-Public Use
  Company Number: US-PFIZER INC-2008057755

PATIENT
  Sex: Female
  Weight: 61.2 kg

DRUGS (2)
  1. DILANTIN [Suspect]
     Indication: GRAND MAL CONVULSION
  2. PHENYTOIN [Suspect]
     Indication: GRAND MAL CONVULSION

REACTIONS (3)
  - ANTICONVULSANT DRUG LEVEL DECREASED [None]
  - DRUG LEVEL FLUCTUATING [None]
  - GRAND MAL CONVULSION [None]
